FAERS Safety Report 23140211 (Version 4)
Quarter: 2024Q1

REPORT INFORMATION
  Report Type: Report from Study
  Country: JP (occurrence: JP)
  Receive Date: 20231102
  Receipt Date: 20240122
  Transmission Date: 20240410
  Serious: Yes (Hospitalization, Other)
  Sender: FDA-Public Use
  Company Number: JP-DSJP-DSJ-2023-144613

PATIENT
  Age: 68 Year
  Sex: Female
  Weight: 57 kg

DRUGS (6)
  1. ENHERTU [Suspect]
     Active Substance: FAM-TRASTUZUMAB DERUXTECAN-NXKI
     Indication: HER2 low breast cancer
     Dosage: 2.6 MG/KG, ONCE EVERY 3 WK
     Route: 041
     Dates: start: 20230927, end: 20230927
  2. ENHERTU [Suspect]
     Active Substance: FAM-TRASTUZUMAB DERUXTECAN-NXKI
     Dosage: 1 MG/KG, ONCE EVERY 3 WK
     Route: 041
     Dates: start: 20231018, end: 20231018
  3. NK1 RECEPTOR ANTAGONIST [Concomitant]
     Dosage: UNK
     Route: 065
  4. DEXAMETHASONE SODIUM PHOSPHATE [Concomitant]
     Active Substance: DEXAMETHASONE PHOSPHATE\DEXAMETHASONE SODIUM PHOSPHATE
     Dosage: UNK
     Route: 042
  5. 5-HT3 RECEPTOR ANTAGONIST [Concomitant]
     Dosage: UNK
     Route: 065
  6. OLANZAPINE [Concomitant]
     Active Substance: OLANZAPINE
     Dosage: UNK
     Route: 065

REACTIONS (1)
  - Seizure [Recovered/Resolved]

NARRATIVE: CASE EVENT DATE: 20230927
